FAERS Safety Report 8356464-4 (Version None)
Quarter: 2012Q2

REPORT INFORMATION
  Report Type: 
  Country: None (occurrence: None)
  Receive Date: 20120514
  Receipt Date: 20120509
  Transmission Date: 20120825
  Serious: Yes (Death)
  Sender: FDA-Public Use
  Company Number: TN-SANOFI-AVENTIS-2012SA033276

PATIENT
  Age: 85 Year
  Sex: Female

DRUGS (6)
  1. ATORVASTATIN CALCIUM [Concomitant]
     Route: 048
     Dates: end: 20120308
  2. PLAVIX [Suspect]
     Indication: ACUTE CORONARY SYNDROME
     Route: 048
     Dates: start: 20120301, end: 20120308
  3. PLAVIX [Suspect]
     Route: 048
     Dates: start: 20120301, end: 20120308
  4. CORDARONE [Concomitant]
     Route: 048
     Dates: end: 20120308
  5. ASPIRIN [Concomitant]
     Route: 048
     Dates: end: 20120308
  6. LASIX [Concomitant]
     Route: 048
     Dates: end: 20120308

REACTIONS (2)
  - LUNG INFECTION [None]
  - SEPTIC SHOCK [None]
